FAERS Safety Report 12893595 (Version 1)
Quarter: 2016Q4

REPORT INFORMATION
  Report Type: Spontaneous
  Country: US (occurrence: US)
  Receive Date: 20161027
  Receipt Date: 20161027
  Transmission Date: 20170207
  Serious: Yes (Other)
  Sender: FDA-Public Use
  Company Number: None

PATIENT
  Age: 44 Year
  Sex: Female
  Weight: 77.4 kg

DRUGS (4)
  1. IMIQUIMOD 5% TOPICAL CREAM [Suspect]
     Active Substance: IMIQUIMOD
     Indication: PRECANCEROUS SKIN LESION
     Dosage: ?          QUANTITY:1 APPLICATION;?
     Route: 061
     Dates: start: 20161019, end: 20161025
  2. ROPINIROLE. [Concomitant]
     Active Substance: ROPINIROLE
  3. GABAPENTIN. [Concomitant]
     Active Substance: GABAPENTIN
  4. MULTIVITA [Concomitant]

REACTIONS (2)
  - Pain [None]
  - Oral mucosal blistering [None]

NARRATIVE: CASE EVENT DATE: 20161025
